FAERS Safety Report 10333611 (Version 1)
Quarter: 2014Q3

REPORT INFORMATION
  Report Type: Spontaneous
  Country: NL (occurrence: NL)
  Receive Date: 20140723
  Receipt Date: 20140723
  Transmission Date: 20150326
  Serious: Yes (Hospitalization)
  Sender: FDA-Public Use
  Company Number: NL-AMGEN-NLDSP2014054692

PATIENT
  Age: 55 Year
  Sex: Female

DRUGS (2)
  1. NEULASTA [Suspect]
     Active Substance: PEGFILGRASTIM
     Indication: PROPHYLAXIS
     Dosage: 10 MG/ML INJVLST WWSP 0.6ML, EVERY 3 WEEKS
     Route: 058
     Dates: start: 20130329
  2. XGEVA [Suspect]
     Active Substance: DENOSUMAB
     Indication: PROPHYLAXIS
     Dosage: 70 MG/ML INJVLST FLACON 1.71ML, EVERY 4 WEEKS
     Route: 058
     Dates: start: 20140607

REACTIONS (1)
  - Pneumothorax [Unknown]
